FAERS Safety Report 5522985-2 (Version None)
Quarter: 2007Q4

REPORT INFORMATION
  Report Type: 
  Country: None (occurrence: None)
  Receive Date: 20071121
  Receipt Date: 20071115
  Transmission Date: 20080405
  Serious: Yes (Other)
  Sender: FDA-Public Use
  Company Number: PHEH2007US14889

PATIENT

DRUGS (2)
  1. TEKTURNA [Suspect]
  2. DIOVAN [Suspect]

REACTIONS (2)
  - BLOOD PRESSURE INCREASED [None]
  - RENAL ARTERY STENOSIS [None]
